FAERS Safety Report 4669853-6 (Version None)
Quarter: 2005Q2

REPORT INFORMATION
  Report Type: 
  Country: None (occurrence: None)
  Receive Date: 20050523
  Receipt Date: 20050511
  Transmission Date: 20051028
  Serious: Yes (Other)
  Sender: FDA-Public Use
  Company Number: US-2005-004908

PATIENT
  Age: 17 Year
  Sex: Female
  Weight: 49.9 kg

DRUGS (5)
  1. YASMIN [Suspect]
     Indication: DYSMENORRHOEA
     Dosage: 1 TAB(S), 1 DOSE, ORAL
     Route: 048
     Dates: start: 20040101, end: 20050301
  2. LAMICTAL [Suspect]
     Indication: EPILEPSY
     Dosage: 100 MG, 2X/DAY, ORAL
     Route: 048
  3. ZYRTEC [Concomitant]
  4. IMITREX [Concomitant]
  5. PROGESTERONE [Concomitant]

REACTIONS (2)
  - ANTICONVULSANT DRUG LEVEL DECREASED [None]
  - GRAND MAL CONVULSION [None]
